FAERS Safety Report 9462871 (Version 4)
Quarter: 2015Q3

REPORT INFORMATION
  Report Type: Spontaneous
  Country: JP (occurrence: None)
  Receive Date: 20130814
  Receipt Date: 20150831
  Transmission Date: 20151125
  Serious: Yes (Other)
  Sender: FDA-Public Use
  Company Number: 2010JP000401

PATIENT
  Age: 65 Year
  Sex: Female
  Weight: 52 kg

DRUGS (14)
  1. ACTOS [Concomitant]
     Active Substance: PIOGLITAZONE HYDROCHLORIDE
  2. CLARITH (CLARITHROMYCIN) [Concomitant]
  3. AMARYL [Concomitant]
     Active Substance: GLIMEPIRIDE
  4. EUGLUCON (GLIBENCLAMIDE) [Concomitant]
  5. NOVORAPID [Concomitant]
     Active Substance: INSULIN ASPART
  6. HUSTAZOL (CLOPERASTINE HYDROCHLORIDE) [Concomitant]
  7. GLUCOBAY (ACARBOSE) [Concomitant]
  8. ALFAROL [Concomitant]
     Active Substance: ALFACALCIDOL
  9. JANUVIA [Concomitant]
     Active Substance: SITAGLIPTIN PHOSPHATE
  10. PREMINENT (HYDROCHLOROTHIAZIDE, LOSARTAN POTASSIUM) [Concomitant]
     Active Substance: HYDROCHLOROTHIAZIDE\LOSARTAN POTASSIUM
  11. PROGRAF [Suspect]
     Active Substance: TACROLIMUS\TACROLIMUS ANHYDROUS
     Indication: LUPUS NEPHRITIS
     Dosage: 3 MG, UNKNOWN/D, ORAL
     Route: 048
     Dates: start: 20070621
  12. ARTIST (CARVEDILOL) [Concomitant]
  13. PL (CAFFEINE, PARACETAMOL, PROMETHAZINE METHYLENE DISALICYLATE, SALICYLAMIDE) [Concomitant]
  14. MICARDIS [Concomitant]
     Active Substance: TELMISARTAN

REACTIONS (12)
  - Lacunar infarction [None]
  - Diabetes mellitus [None]
  - Pharyngitis [None]
  - Community acquired infection [None]
  - Beta 2 microglobulin urine increased [None]
  - Concomitant disease aggravated [None]
  - Infection [None]
  - Type 2 diabetes mellitus [None]
  - Gallbladder polyp [None]
  - Upper respiratory tract inflammation [None]
  - Hypertension [None]
  - Seasonal allergy [None]

NARRATIVE: CASE EVENT DATE: 20080221
